FAERS Safety Report 6298799-5 (Version None)
Quarter: 2009Q3

REPORT INFORMATION
  Report Type: 
  Country: None (occurrence: None)
  Receive Date: 20090806
  Receipt Date: 20071211
  Transmission Date: 20100115
  Serious: Yes (Other)
  Sender: FDA-Public Use
  Company Number: US-ASTRAZENECA-2007UW01746

PATIENT
  Age: 608 Month
  Sex: Female
  Weight: 80.3 kg

DRUGS (11)
  1. SEROQUEL [Suspect]
     Indication: SLEEP DISORDER
     Dosage: 25 - 600 MG
     Route: 048
     Dates: start: 20030128, end: 20050912
  2. SEROQUEL [Suspect]
     Indication: DEPRESSION
     Dosage: 25 - 600 MG
     Route: 048
     Dates: start: 20030128, end: 20050912
  3. SEROQUEL [Suspect]
     Indication: SCHIZOPHRENIA
     Dosage: 25 - 600 MG
     Route: 048
     Dates: start: 20030128, end: 20050912
  4. SEROQUEL [Suspect]
     Indication: BIPOLAR DISORDER
     Dosage: 25 - 600 MG
     Route: 048
     Dates: start: 20030128, end: 20050912
  5. SEROQUEL [Suspect]
     Dosage: 300 MG TO 600 MG, 800 MG
     Route: 048
     Dates: start: 20030201, end: 20060409
  6. SEROQUEL [Suspect]
     Dosage: 300 MG TO 600 MG, 800 MG
     Route: 048
     Dates: start: 20030201, end: 20060409
  7. SEROQUEL [Suspect]
     Dosage: 300 MG TO 600 MG, 800 MG
     Route: 048
     Dates: start: 20030201, end: 20060409
  8. SEROQUEL [Suspect]
     Dosage: 300 MG TO 600 MG, 800 MG
     Route: 048
     Dates: start: 20030201, end: 20060409
  9. RISPERDAL [Concomitant]
     Dates: start: 20050101
  10. EFFEXOR [Concomitant]
     Dosage: 38.5 - 150 MG
     Route: 048
     Dates: start: 20030128
  11. ZOLOFT [Concomitant]
     Dates: start: 20030128

REACTIONS (2)
  - NEUROPATHY PERIPHERAL [None]
  - TYPE 2 DIABETES MELLITUS [None]
